FAERS Safety Report 9038849 (Version 1)
Quarter: 2013Q1

REPORT INFORMATION
  Report Type: Not Available
  Country: GB (occurrence: GB)
  Receive Date: 20130129
  Receipt Date: 20130129
  Transmission Date: 20140127
  Serious: Yes (Other)
  Sender: FDA-Public Use
  Company Number: GB-PURDUE-GBR-2013-0013025

PATIENT
  Age: 57 Year
  Sex: Female
  Weight: 39.01 kg

DRUGS (6)
  1. THEOPHYLLINE [Suspect]
     Indication: COR PULMONALE
     Dosage: 200 MG, UNK
     Route: 048
     Dates: start: 20121221, end: 20130105
  2. QVAR [Concomitant]
  3. RAMIPRIL [Concomitant]
     Dosage: 5 MG, UNK
  4. SALBUTAMOL [Concomitant]
  5. SALMETEROL [Concomitant]
  6. TIOTROPIUM [Concomitant]

REACTIONS (1)
  - Chest discomfort [Recovering/Resolving]
